FAERS Safety Report 17204700 (Version 1)
Quarter: 2019Q4

REPORT INFORMATION
  Report Type: Report from Study
  Country: None (occurrence: AR)
  Receive Date: 20191226
  Receipt Date: 20191226
  Transmission Date: 20200122
  Serious: Yes (Life-Threatening, Other)
  Sender: FDA-Public Use
  Company Number: AR-ABBVIE-19K-007-3194568-00

PATIENT
  Age: 66 Year
  Sex: Female

DRUGS (1)
  1. HUMIRA [Suspect]
     Active Substance: ADALIMUMAB
     Indication: RHEUMATOID ARTHRITIS
     Route: 058
     Dates: start: 20181030

REACTIONS (9)
  - Eye infection [Unknown]
  - Mass [Unknown]
  - Eye pain [Unknown]
  - Ocular discomfort [Unknown]
  - Vision blurred [Unknown]
  - Non-Hodgkin^s lymphoma [Not Recovered/Not Resolved]
  - Neoplasm [Unknown]
  - Ocular discomfort [Unknown]
  - Eye inflammation [Unknown]

NARRATIVE: CASE EVENT DATE: 201906
